FAERS Safety Report 19232816 (Version 2)
Quarter: 2021Q2

REPORT INFORMATION
  Report Type: Spontaneous
  Country: UY (occurrence: UY)
  Receive Date: 20210507
  Receipt Date: 20210601
  Transmission Date: 20210717
  Serious: No
  Sender: FDA-Public Use
  Company Number: UY-PFIZER INC-2021437215

PATIENT
  Age: 9 Year
  Sex: Female

DRUGS (1)
  1. GENOTROPIN [Suspect]
     Active Substance: SOMATROPIN
     Indication: GROWTH RETARDATION
     Dosage: 0.6 TO 1 MG, 6 TIMES PER WEEK
     Dates: start: 20170622

REACTIONS (2)
  - Drug dose omission by device [Unknown]
  - Device breakage [Unknown]

NARRATIVE: CASE EVENT DATE: 202104
